FAERS Safety Report 5870331-7 (Version None)
Quarter: 2008Q3

REPORT INFORMATION
  Report Type: 
  Country: None (occurrence: None)
  Receive Date: 20080904
  Receipt Date: 20070919
  Transmission Date: 20090109
  Serious: No
  Sender: FDA-Public Use
  Company Number: US-BRISTOL-MYERS SQUIBB COMPANY-13913157

PATIENT
  Age: 69 Year
  Sex: Male

DRUGS (13)
  1. DEFINITY [Suspect]
  2. DIOVAN [Concomitant]
  3. ASPIRIN [Concomitant]
  4. SYNTHROID [Concomitant]
  5. ZOCOR [Concomitant]
  6. MUCOMYST [Concomitant]
  7. ACTOS [Concomitant]
  8. PLAVIX [Concomitant]
  9. PEPCID [Concomitant]
  10. SOLU-MEDROL [Concomitant]
  11. BENADRYL [Concomitant]
  12. SODIUM BICARBONATE [Concomitant]
  13. HEPARIN [Concomitant]

REACTIONS (1)
  - BACK PAIN [None]
